FAERS Safety Report 13314202 (Version 2)
Quarter: 2017Q2

REPORT INFORMATION
  Report Type: Report from Study
  Country: US (occurrence: US)
  Receive Date: 20170308
  Receipt Date: 20170613
  Transmission Date: 20170830
  Serious: No
  Sender: FDA-Public Use
  Company Number: US-ASTRAZENECA-2017SE24061

PATIENT
  Sex: Female

DRUGS (7)
  1. METOPROLOL SUCCINATE. [Concomitant]
     Active Substance: METOPROLOL SUCCINATE
  2. HYDROCODON-ACETAMINOPHIN [Concomitant]
  3. SUCRALFATE. [Concomitant]
     Active Substance: SUCRALFATE
  4. MORPHINE SULPHATE [Concomitant]
     Active Substance: MORPHINE SULFATE
  5. TRULICITY [Concomitant]
     Active Substance: DULAGLUTIDE
  6. MOVANTIK [Suspect]
     Active Substance: NALOXEGOL OXALATE
     Route: 048
  7. CLOPIDOGREL [Concomitant]
     Active Substance: CLOPIDOGREL BISULFATE

REACTIONS (1)
  - Influenza [Unknown]
